FAERS Safety Report 7653261-X (Version None)
Quarter: 2011Q3

REPORT INFORMATION
  Report Type: 
  Country: None (occurrence: None)
  Receive Date: 20110803
  Receipt Date: 20110727
  Transmission Date: 20111222
  Serious: Yes (Life-Threatening, Hospitalization)
  Sender: FDA-Public Use
  Company Number: IT-CELGENEUS-083-21880-10071086

PATIENT
  Sex: Female
  Weight: 60 kg

DRUGS (8)
  1. ITRACONAZOLE [Concomitant]
     Dosage: 100 MILLIGRAM
     Route: 065
  2. URSODIOL [Concomitant]
     Dosage: 400 MILLIGRAM
     Route: 065
  3. RED BLOOD CELLS [Concomitant]
     Indication: CHRONIC LYMPHOCYTIC LEUKAEMIA
     Route: 065
  4. REVLIMID [Suspect]
     Indication: CHRONIC LYMPHOCYTIC LEUKAEMIA
     Dosage: 2.5 MILLIGRAM
     Route: 048
     Dates: start: 20100422, end: 20100520
  5. ERYTHROPOIETIN ALFA [Concomitant]
     Dosage: 4000 IU (INTERNATIONAL UNIT)
     Route: 065
  6. DANAZOL [Concomitant]
     Dosage: 400 MILLIGRAM
     Route: 065
  7. PLATELETS [Concomitant]
     Indication: CHRONIC LYMPHOCYTIC LEUKAEMIA
  8. ALLOPURINOL [Concomitant]
     Dosage: 300 MILLIGRAM
     Route: 065

REACTIONS (3)
  - NO THERAPEUTIC RESPONSE [None]
  - GALLBLADDER CANCER [None]
  - THROMBOCYTOPENIA [None]
